FAERS Safety Report 15957514 (Version 1)
Quarter: 2019Q1

REPORT INFORMATION
  Report Type: Spontaneous
  Country: US (occurrence: US)
  Receive Date: 20190213
  Receipt Date: 20190213
  Transmission Date: 20190417
  Serious: No
  Sender: FDA-Public Use
  Company Number: US-SA-2018SA034555

PATIENT

DRUGS (5)
  1. ARAVA [Suspect]
     Active Substance: LEFLUNOMIDE
     Indication: RHEUMATOID ARTHRITIS
     Dosage: UNK UNK,UNK
     Route: 048
     Dates: start: 200512, end: 200602
  2. METHOTREXATE. [Concomitant]
     Active Substance: METHOTREXATE
     Route: 065
  3. PLAQUENIL [Suspect]
     Active Substance: HYDROXYCHLOROQUINE SULFATE
     Dosage: UNK UNK,UNK
     Route: 048
     Dates: start: 201210, end: 201306
  4. HUMIRA [Concomitant]
     Active Substance: ADALIMUMAB
     Dosage: UNK UNK,UNK
     Route: 065
     Dates: start: 201309, end: 201502
  5. CIMZIA [Concomitant]
     Active Substance: CERTOLIZUMAB PEGOL
     Route: 065

REACTIONS (3)
  - Ill-defined disorder [Unknown]
  - Rash generalised [Unknown]
  - Fatigue [Unknown]
